FAERS Safety Report 8364695-2 (Version None)
Quarter: 2012Q2

REPORT INFORMATION
  Report Type: 
  Country: None (occurrence: None)
  Receive Date: 20120516
  Receipt Date: 20120510
  Transmission Date: 20120825
  Serious: Yes (Death)
  Sender: FDA-Public Use
  Company Number: BR-ASTRAZENECA-2012SE30443

PATIENT
  Sex: Female

DRUGS (1)
  1. BRILINTA [Suspect]
     Route: 048
     Dates: start: 20120301

REACTIONS (1)
  - INFARCTION [None]
